FAERS Safety Report 8311426-8 (Version None)
Quarter: 2012Q2

REPORT INFORMATION
  Report Type: 
  Country: None (occurrence: None)
  Receive Date: 20120425
  Receipt Date: 20111011
  Transmission Date: 20120825
  Serious: Yes (Other)
  Sender: FDA-Public Use
  Company Number: SE-CELGENEUS-150-20785-11101175

PATIENT
  Sex: Male

DRUGS (3)
  1. THALIDOMIDE [Suspect]
     Indication: MULTIPLE MYELOMA
     Dosage: 100 MILLIGRAM
     Route: 048
     Dates: end: 20100820
  2. CYCLOPHOSPHAMIDE [Concomitant]
     Route: 065
  3. DEXAMETHASONE [Concomitant]
     Route: 065

REACTIONS (2)
  - NEOPLASM [None]
  - NEUROPATHY PERIPHERAL [None]
